FAERS Safety Report 15894120 (Version 1)
Quarter: 2019Q1

REPORT INFORMATION
  Report Type: Spontaneous
  Country: US (occurrence: US)
  Receive Date: 20190130
  Receipt Date: 20190130
  Transmission Date: 20190417
  Serious: No
  Sender: FDA-Public Use
  Company Number: None

PATIENT
  Age: 34 Year
  Sex: Female
  Weight: 108 kg

DRUGS (10)
  1. EXCEDRIN [Concomitant]
     Active Substance: ACETAMINOPHEN\ASPIRIN\CAFFEINE
  2. VITAMIN D [Concomitant]
     Active Substance: CHOLECALCIFEROL
  3. IMITREX [Concomitant]
     Active Substance: SUMATRIPTAN SUCCINATE
  4. COQ10 [Concomitant]
     Active Substance: UBIDECARENONE
  5. IRON [Concomitant]
     Active Substance: IRON
  6. BOTOX [Concomitant]
     Active Substance: ONABOTULINUMTOXINA
  7. MAGNESIUM [Concomitant]
     Active Substance: MAGNESIUM
  8. AIMOVIG [Suspect]
     Active Substance: ERENUMAB-AOOE
     Indication: MIGRAINE
     Dosage: ?          QUANTITY:1 INJECTION(S);OTHER FREQUENCY:ONCE A MONTH;?
     Route: 030
     Dates: start: 20181113, end: 20190130
  9. VITAMIN B2 [Concomitant]
     Active Substance: RIBOFLAVIN
  10. VITAMIN B12 [Concomitant]
     Active Substance: CYANOCOBALAMIN

REACTIONS (17)
  - Dry skin [None]
  - Nail disorder [None]
  - Oropharyngeal pain [None]
  - Injection site erythema [None]
  - Palpitations [None]
  - Alopecia [None]
  - Constipation [None]
  - Fatigue [None]
  - Injection site pain [None]
  - Migraine [None]
  - Vaginal haemorrhage [None]
  - Injection site swelling [None]
  - Dizziness [None]
  - Nausea [None]
  - Weight increased [None]
  - Anxiety [None]
  - Injection site pruritus [None]

NARRATIVE: CASE EVENT DATE: 20190130
